FAERS Safety Report 9501237 (Version 1)
Quarter: 2013Q3

REPORT INFORMATION
  Report Type: Spontaneous
  Country: US (occurrence: US)
  Receive Date: 20130905
  Receipt Date: 20130905
  Transmission Date: 20140515
  Serious: No
  Sender: FDA-Public Use
  Company Number: US-BAYER-2013-107225

PATIENT
  Age: 87 Year
  Sex: Female
  Weight: 64 kg

DRUGS (3)
  1. ALEVE TABLET [Suspect]
     Dosage: 1 DF, BID
     Route: 048
     Dates: start: 20130731
  2. CITRACAL [Concomitant]
  3. FLEXAMIN [Concomitant]

REACTIONS (9)
  - Musculoskeletal chest pain [Not Recovered/Not Resolved]
  - Decreased appetite [Not Recovered/Not Resolved]
  - Asthenia [Not Recovered/Not Resolved]
  - Crepitations [Not Recovered/Not Resolved]
  - Constipation [Not Recovered/Not Resolved]
  - Flatulence [Not Recovered/Not Resolved]
  - Dyspepsia [Not Recovered/Not Resolved]
  - Nausea [Not Recovered/Not Resolved]
  - Vomiting [Recovered/Resolved]
